FAERS Safety Report 16673616 (Version 1)
Quarter: 2019Q3

REPORT INFORMATION
  Report Type: Spontaneous
  Country: US (occurrence: US)
  Receive Date: 20190806
  Receipt Date: 20190806
  Transmission Date: 20191004
  Serious: Yes (Hospitalization, Other)
  Sender: FDA-Public Use
  Company Number: US-PFIZER INC-2019331194

PATIENT
  Age: 55 Year
  Sex: Female

DRUGS (1)
  1. XELJANZ [Suspect]
     Active Substance: TOFACITINIB CITRATE
     Indication: RHEUMATOID ARTHRITIS
     Dosage: 5 MG, 2X/DAY
     Route: 048
     Dates: start: 201707

REACTIONS (15)
  - Malaise [Unknown]
  - Anaphylactic reaction [Recovering/Resolving]
  - Migraine [Recovering/Resolving]
  - Rectocele [Unknown]
  - Blindness [Recovering/Resolving]
  - Cyst [Recovering/Resolving]
  - Urinary tract infection [Recovering/Resolving]
  - Irritable bowel syndrome [Recovering/Resolving]
  - Constipation [Recovering/Resolving]
  - Rectal prolapse [Recovering/Resolving]
  - White blood cell count decreased [Recovering/Resolving]
  - Pain [Unknown]
  - Dehydration [Unknown]
  - Red blood cell count decreased [Recovering/Resolving]
  - Joint range of motion decreased [Recovering/Resolving]

NARRATIVE: CASE EVENT DATE: 201811
